FAERS Safety Report 6613161-0 (Version None)
Quarter: 2010Q1

REPORT INFORMATION
  Report Type: 
  Country: None (occurrence: None)
  Receive Date: 20100304
  Receipt Date: 20100223
  Transmission Date: 20100710
  Serious: Yes (Other)
  Sender: FDA-Public Use
  Company Number: DE-WYE-G05414510

PATIENT
  Sex: Female
  Weight: 62 kg

DRUGS (4)
  1. TREVILOR RETARD [Suspect]
     Indication: DEPRESSION
     Route: 048
     Dates: start: 20091207, end: 20100107
  2. TREVILOR RETARD [Suspect]
     Indication: PROPHYLAXIS
     Dosage: 37.5 - 112.5 MG PER DAY
     Route: 048
     Dates: start: 20090831, end: 20091203
  3. MIRTAZAPINE [Concomitant]
     Indication: DEPRESSION
     Dosage: 15-45 MG PER DAY
     Route: 048
     Dates: start: 20090831, end: 20100106
  4. MIRTAZAPINE [Concomitant]
     Indication: PROPHYLAXIS
     Route: 048
     Dates: start: 20100107

REACTIONS (9)
  - ALANINE AMINOTRANSFERASE INCREASED [None]
  - ASPARTATE AMINOTRANSFERASE INCREASED [None]
  - BUNDLE BRANCH BLOCK RIGHT [None]
  - CONDITION AGGRAVATED [None]
  - GAMMA-GLUTAMYLTRANSFERASE INCREASED [None]
  - NIGHT SWEATS [None]
  - NODAL RHYTHM [None]
  - SINUS ARRHYTHMIA [None]
  - SUPRAVENTRICULAR EXTRASYSTOLES [None]
